FAERS Safety Report 25627666 (Version 3)
Quarter: 2025Q4

REPORT INFORMATION
  Report Type: Report from Study
  Country: US (occurrence: US)
  Receive Date: 20250731
  Receipt Date: 20251125
  Transmission Date: 20260118
  Serious: Yes (Other)
  Sender: NOVARTIS
  Company Number: US-002147023-NVSC2025US119790

PATIENT
  Sex: Female

DRUGS (10)
  1. KESIMPTA [Suspect]
     Active Substance: OFATUMUMAB
     Indication: Multiple sclerosis
     Dosage: 20 MG, OTHER (ONCE A WEEK FOR 3 WEEKS, SKIP WEEK 4, WEEK 5 START MONTHLY)
     Route: 058
     Dates: start: 20250530
  2. KESIMPTA [Suspect]
     Active Substance: OFATUMUMAB
     Dosage: 1 DOSAGE FORM, QMO
     Route: 058
     Dates: start: 20250627
  3. CYANOCOBALAMIN [Concomitant]
     Active Substance: CYANOCOBALAMIN
     Indication: Product used for unknown indication
     Dosage: 1 ML, QMO (INJECT 1 ML (1,000 3 ML 3 INJECTION MCG TOTAL) INTO THE SHOULDER, THIGH, OR BUTTOCKS EVER
     Route: 030
  4. PROZAC [Concomitant]
     Active Substance: FLUOXETINE HYDROCHLORIDE
     Indication: Product used for unknown indication
     Dosage: 3 DOSAGE FORM (10 MG), QD (CAPSULE)
     Route: 048
  5. MELATONIN [Concomitant]
     Active Substance: MELATONIN
     Indication: Product used for unknown indication
     Dosage: 1 DOSAGE FORM (3 MG/0.9ML LIQUID), PRN
     Route: 048
  6. NAMENDA [Concomitant]
     Active Substance: MEMANTINE HYDROCHLORIDE
     Indication: Product used for unknown indication
     Dosage: 1 DOSAGE FORM (10 MG) (TABLET), BID
     Route: 048
     Dates: start: 20251009
  7. GLUCOPHAGE XR [Concomitant]
     Active Substance: METFORMIN HYDROCHLORIDE
     Indication: Product used for unknown indication
     Dosage: 500 MG (TABLET), QD (WITH BREAKFAST)
     Route: 048
  8. TOPROL XL [Concomitant]
     Active Substance: METOPROLOL SUCCINATE
     Indication: Product used for unknown indication
     Dosage: 25 MG (50 MG 24 HR TABLET), QD
     Route: 048
  9. VITAMINS [Concomitant]
     Active Substance: VITAMINS
     Indication: Product used for unknown indication
     Dosage: 1 DOSAGE FORM, QD
     Route: 048
  10. VITAMIN D [Concomitant]
     Active Substance: VITAMIN D NOS
     Indication: Vitamin D deficiency
     Dosage: UNK (1.25 MG (50000 UT) CAPSULE, QD (FOR 7 DAYS THEN ONCE A WEEK)
     Route: 065

REACTIONS (6)
  - Multiple sclerosis [Unknown]
  - Electric shock sensation [Unknown]
  - Vitamin B12 deficiency [Unknown]
  - Fatigue [Unknown]
  - Alopecia [Unknown]
  - Gait disturbance [Recovered/Resolved]
